FAERS Safety Report 24921894 (Version 1)
Quarter: 2025Q1

REPORT INFORMATION
  Report Type: Spontaneous
  Country: US (occurrence: None)
  Receive Date: 20250203
  Receipt Date: 20250203
  Transmission Date: 20250408
  Serious: Yes (Life-Threatening)
  Sender: FDA-CTU
  Company Number: None

PATIENT
  Age: 33 Year
  Sex: Female
  Weight: 99 kg

DRUGS (1)
  1. TIRZEPATIDE [Suspect]
     Active Substance: TIRZEPATIDE
     Indication: Overweight
     Route: 058
     Dates: start: 20250122, end: 20250129

REACTIONS (4)
  - Reaction to excipient [None]
  - Suspected counterfeit product [None]
  - Drug dependence [None]
  - Product advertising issue [None]

NARRATIVE: CASE EVENT DATE: 20250202
